FAERS Safety Report 5922060-9 (Version None)
Quarter: 2008Q4

REPORT INFORMATION
  Report Type: 
  Country: None (occurrence: None)
  Receive Date: 20081017
  Receipt Date: 20081014
  Transmission Date: 20090506
  Serious: Yes (Other)
  Sender: FDA-Public Use
  Company Number: B0537109A

PATIENT
  Age: 78 Year
  Sex: Male

DRUGS (6)
  1. AUGMENTIN '125' [Suspect]
     Indication: SKIN INFECTION
     Route: 048
     Dates: start: 20080722, end: 20080725
  2. LIORESAL [Suspect]
     Indication: QUADRIPLEGIA
     Dosage: 25MG PER DAY
     Route: 065
     Dates: start: 20080617, end: 20080813
  3. LANSOPRAZOLE [Suspect]
     Indication: PROPHYLAXIS
     Dosage: 30MG SINGLE DOSE
     Dates: start: 20080713, end: 20080724
  4. ACETYLSALICYLIC ACID SRT [Concomitant]
     Dosage: 100MG PER DAY
  5. RAMIPRIL [Concomitant]
  6. ACETAMINOPHEN [Concomitant]

REACTIONS (4)
  - ALANINE AMINOTRANSFERASE INCREASED [None]
  - ASPARTATE AMINOTRANSFERASE INCREASED [None]
  - GAMMA-GLUTAMYLTRANSFERASE INCREASED [None]
  - HEPATITIS [None]
